FAERS Safety Report 14974542 (Version 2)
Quarter: 2018Q3

REPORT INFORMATION
  Report Type: Spontaneous
  Country: US (occurrence: US)
  Receive Date: 20180605
  Receipt Date: 20180717
  Transmission Date: 20181010
  Serious: No
  Sender: FDA-Public Use
  Company Number: PHHY2018US015625

PATIENT
  Sex: Female

DRUGS (1)
  1. GENTEAL PF LUBRICANT EYE DROPS [Suspect]
     Active Substance: HYPROMELLOSE 2910 (4000 MPA.S)
     Indication: DRY EYE
     Route: 047

REACTIONS (1)
  - Expired product administered [Recovered/Resolved]
